FAERS Safety Report 12900383 (Version 1)
Quarter: 2016Q4

REPORT INFORMATION
  Report Type: Spontaneous
  Country: US (occurrence: US)
  Receive Date: 20161101
  Receipt Date: 20161101
  Transmission Date: 20170207
  Serious: Yes (Other)
  Sender: FDA-Public Use
  Company Number: US-ELI_LILLY_AND_COMPANY-US201610008815

PATIENT
  Age: 78 Year
  Sex: Male

DRUGS (4)
  1. PEMETREXED [Suspect]
     Active Substance: PEMETREXED
     Dosage: UNK, CYCLICAL
     Route: 065
     Dates: start: 20120905, end: 201212
  2. PEMETREXED [Suspect]
     Active Substance: PEMETREXED
     Indication: LUNG ADENOCARCINOMA
     Dosage: UNK, CYCLICAL
     Route: 065
     Dates: start: 201003, end: 201010
  3. GEMCITABINE HYDROCHLORIDE. [Concomitant]
     Active Substance: GEMCITABINE HYDROCHLORIDE
     Indication: LUNG ADENOCARCINOMA
     Dosage: UNK, CYCLICAL
     Route: 065
     Dates: start: 200912, end: 201003
  4. PEMETREXED [Suspect]
     Active Substance: PEMETREXED
     Dosage: UNK UNK,  6 CYCLICAL
     Route: 065
     Dates: start: 201308, end: 201311

REACTIONS (1)
  - Renal failure [Unknown]
